FAERS Safety Report 12526123 (Version 4)
Quarter: 2016Q4

REPORT INFORMATION
  Report Type: Spontaneous
  Country: US (occurrence: US)
  Receive Date: 20160705
  Receipt Date: 20161216
  Transmission Date: 20170207
  Serious: Yes (Death, Other)
  Sender: FDA-Public Use
  Company Number: US-PFIZER INC-2016295016

PATIENT
  Age: 84 Year
  Sex: Female

DRUGS (6)
  1. IBRANCE [Suspect]
     Active Substance: PALBOCICLIB
     Indication: ENDOMETRIAL CANCER METASTATIC
     Dosage: 125 MG, CYCLIC (D1-21/ Q 4 WKS)
     Route: 048
     Dates: start: 20160429, end: 20160623
  2. NEUPOGEN [Concomitant]
     Active Substance: FILGRASTIM
     Indication: NEUTROPENIA
     Dosage: 3 DF, UNK
     Dates: start: 20160526
  3. IBRANCE [Suspect]
     Active Substance: PALBOCICLIB
     Dosage: 20 MG, ONCE A DAY
     Dates: start: 20160501, end: 20160721
  4. LETROZOLE. [Concomitant]
     Active Substance: LETROZOLE
     Indication: ENDOMETRIAL CANCER METASTATIC
     Dosage: UNK
     Dates: start: 201604, end: 20160623
  5. LOVENOX [Concomitant]
     Active Substance: ENOXAPARIN SODIUM
     Indication: JUGULAR VEIN OCCLUSION
     Dosage: UNK UNK, DAILY
     Dates: start: 201603, end: 20160623
  6. LETROZOLE. [Concomitant]
     Active Substance: LETROZOLE
     Indication: ENDOMETRIAL CANCER METASTATIC
     Dosage: UNK
     Route: 048

REACTIONS (5)
  - Product use issue [Recovered/Resolved]
  - Endometrial cancer metastatic [Fatal]
  - Neutropenia [Recovered/Resolved]
  - Disease progression [Fatal]
  - Malaise [Unknown]

NARRATIVE: CASE EVENT DATE: 20160429
